FAERS Safety Report 19646686 (Version 8)
Quarter: 2022Q3

REPORT INFORMATION
  Report Type: Report from Study
  Country: US (occurrence: US)
  Receive Date: 20210802
  Receipt Date: 20220916
  Transmission Date: 20221027
  Serious: Yes (Hospitalization)
  Sender: FDA-Public Use
  Company Number: US-TAKEDA-2021TUS046770

PATIENT
  Age: 49 Year
  Sex: Male
  Weight: 126 kg

DRUGS (28)
  1. HUMAN IMMUNOGLOBULIN G [Suspect]
     Active Substance: HUMAN IMMUNOGLOBULIN G
     Indication: Myasthenia gravis
     Dosage: 1000 MILLIGRAM/KILOGRAM, Q4WEEKS
     Route: 042
     Dates: start: 20210315
  2. HUMAN IMMUNOGLOBULIN G [Suspect]
     Active Substance: HUMAN IMMUNOGLOBULIN G
     Indication: Myasthenia gravis
     Dosage: 1000 MILLIGRAM/KILOGRAM, Q4WEEKS
     Route: 042
     Dates: start: 20210315
  3. HUMAN IMMUNOGLOBULIN G [Suspect]
     Active Substance: HUMAN IMMUNOGLOBULIN G
     Dosage: 125 GRAM, Q4WEEKS
     Route: 042
     Dates: start: 20210315
  4. HUMAN IMMUNOGLOBULIN G [Suspect]
     Active Substance: HUMAN IMMUNOGLOBULIN G
     Dosage: 125 GRAM, Q4WEEKS
     Route: 042
     Dates: start: 20210315
  5. HUMAN IMMUNOGLOBULIN G [Suspect]
     Active Substance: HUMAN IMMUNOGLOBULIN G
     Dosage: 1000 MILLIGRAM/KILOGRAM, Q4WEEKS
     Route: 042
     Dates: start: 20210315
  6. HUMAN IMMUNOGLOBULIN G [Suspect]
     Active Substance: HUMAN IMMUNOGLOBULIN G
     Dosage: 1000 MILLIGRAM/KILOGRAM, Q4WEEKS
     Route: 042
     Dates: start: 20210315
  7. HUMAN IMMUNOGLOBULIN G [Suspect]
     Active Substance: HUMAN IMMUNOGLOBULIN G
     Dosage: 125 GRAM
     Route: 042
     Dates: start: 20210315
  8. HUMAN IMMUNOGLOBULIN G [Suspect]
     Active Substance: HUMAN IMMUNOGLOBULIN G
     Dosage: 125 GRAM
     Route: 042
     Dates: start: 20210315
  9. PREDNISONE [Concomitant]
     Active Substance: PREDNISONE
     Route: 065
  10. PYRIDOSTIGMINE BROMIDE [Concomitant]
     Active Substance: PYRIDOSTIGMINE BROMIDE
     Route: 065
  11. FAMOTIDINE [Concomitant]
     Active Substance: FAMOTIDINE
     Route: 065
  12. ASPIRIN [Concomitant]
     Active Substance: ASPIRIN
     Dosage: UNK
     Route: 065
  13. VITAMIN C [Concomitant]
     Active Substance: ASCORBIC ACID
     Route: 065
  14. SIMVASTATIN [Concomitant]
     Active Substance: SIMVASTATIN
     Route: 065
  15. VITAMIN A [Concomitant]
     Active Substance: VITAMIN A
     Route: 065
  16. VITAMIN D3 [Concomitant]
     Active Substance: CHOLECALCIFEROL
     Route: 065
  17. FISH OIL [Concomitant]
     Active Substance: FISH OIL
     Route: 065
  18. ACETAMINOPHEN [Concomitant]
     Active Substance: ACETAMINOPHEN
     Route: 065
  19. DIPHENHYDRAMINE [Concomitant]
     Active Substance: DIPHENHYDRAMINE
     Route: 065
  20. HEPARIN SODIUM [Concomitant]
     Active Substance: HEPARIN SODIUM
     Route: 065
  21. SODIUM CHLORIDE [Concomitant]
     Active Substance: SODIUM CHLORIDE
     Route: 065
  22. EPINEPHRINE [Concomitant]
     Active Substance: EPINEPHRINE
     Route: 065
  23. Lmx [Concomitant]
     Route: 065
  24. SODIUM CHLORIDE [Concomitant]
     Active Substance: SODIUM CHLORIDE
  25. DIPHENHYDRAMINE HYDROCHLORIDE [Concomitant]
     Active Substance: DIPHENHYDRAMINE HYDROCHLORIDE
     Route: 065
  26. AZATHIOPRINE [Concomitant]
     Active Substance: AZATHIOPRINE
  27. HEPARIN [Concomitant]
     Active Substance: HEPARIN SODIUM
  28. PYRIDOSTIGMINE [Concomitant]
     Active Substance: PYRIDOSTIGMINE

REACTIONS (14)
  - Thymectomy [Unknown]
  - Dehydration [Unknown]
  - Eye infection [Unknown]
  - Insomnia [Unknown]
  - Headache [Unknown]
  - Malaise [Unknown]
  - Poor quality sleep [Unknown]
  - Infusion site bruising [Unknown]
  - Eczema [Not Recovered/Not Resolved]
  - Rash [Unknown]
  - Mastication disorder [Unknown]
  - Infusion related reaction [Unknown]
  - Off label use [Unknown]
  - Therapy interrupted [Unknown]

NARRATIVE: CASE EVENT DATE: 20210326
